FAERS Safety Report 6971976-3 (Version None)
Quarter: 2010Q3

REPORT INFORMATION
  Report Type: 
  Country: None (occurrence: None)
  Receive Date: 20100908
  Receipt Date: 20100908
  Transmission Date: 20110219
  Serious: No
  Sender: FDA-Public Use
  Company Number: None

PATIENT

DRUGS (1)
  1. BONIVA [Suspect]

REACTIONS (4)
  - ARTHRALGIA [None]
  - NECK PAIN [None]
  - PAIN IN JAW [None]
  - TOOTHACHE [None]
